FAERS Safety Report 21948152 (Version 1)
Quarter: 2023Q1

REPORT INFORMATION
  Report Type: Spontaneous
  Country: PT (occurrence: None)
  Receive Date: 20230203
  Receipt Date: 20230203
  Transmission Date: 20230417
  Serious: Yes (Life-Threatening, Hospitalization, Other)
  Sender: FDA-Public Use
  Company Number: PT-MLMSERVICE-20230119-4041473-1

PATIENT
  Age: 22 Year
  Sex: Female

DRUGS (2)
  1. FUROSEMIDE [Suspect]
     Active Substance: FUROSEMIDE
     Indication: Weight decreased
     Dosage: HAD BEEN USING FUROSEMIDE IN DIFFERENT DOSES INTERMITTENTLY (PRESCRIBED TO HER FATHER), FOR THE LAST
     Route: 065
  2. FUROSEMIDE [Suspect]
     Active Substance: FUROSEMIDE
     Route: 065

REACTIONS (2)
  - Pseudo-Bartter syndrome [Recovered/Resolved]
  - Drug abuse [Recovered/Resolved]
